FAERS Safety Report 9109423 (Version 2)
Quarter: 2013Q2

REPORT INFORMATION
  Report Type: Spontaneous
  Country: US (occurrence: US)
  Receive Date: 20130222
  Receipt Date: 20130401
  Transmission Date: 20140414
  Serious: Yes (Death, Life-Threatening, Hospitalization, Other)
  Sender: FDA-Public Use
  Company Number: US-BAYER-2013-021663

PATIENT
  Age: 54 Year
  Sex: Female

DRUGS (13)
  1. BETASERON [Suspect]
     Indication: MULTIPLE SCLEROSIS
     Dosage: 0.25 MG, QOD
     Route: 058
     Dates: start: 20120915, end: 20130201
  2. HEPARIN [Concomitant]
  3. NEO-SYNEPHRINE COLD + SINUS EXTRA STRENGTH [Concomitant]
  4. NEO-SYNEPHRINE COLD + SINUS EXTRA STRENGTH [Concomitant]
  5. AMIODARONE [Concomitant]
  6. ZOSYN [Concomitant]
  7. OFIRMEV [Concomitant]
  8. METHIMAZOLE [Concomitant]
  9. ASPIRIN [Concomitant]
  10. HYDROCORTISONE [Concomitant]
  11. PROTONIX [Concomitant]
  12. VANCOMYCIN [Concomitant]
  13. DEXTROSE [Concomitant]

REACTIONS (11)
  - Myocardial infarction [Fatal]
  - Ventricular fibrillation [None]
  - Sinus tachycardia [None]
  - Cardiac arrest [None]
  - Hyperkalaemia [None]
  - Sepsis [None]
  - Hypotension [None]
  - Renal failure acute [None]
  - Metabolic acidosis [None]
  - Lactic acidosis [None]
  - Coma [None]
